FAERS Safety Report 11030206 (Version 1)
Quarter: 2015Q2

REPORT INFORMATION
  Report Type: Spontaneous
  Country: US (occurrence: None)
  Receive Date: 20150414
  Receipt Date: 20150414
  Transmission Date: 20150821
  Serious: No
  Sender: FDA-Public Use
  Company Number: None

PATIENT
  Age: 59 Year
  Sex: Male
  Weight: 120.5 kg

DRUGS (1)
  1. LEDIPASVIR/SOFOSBUVIR [Suspect]
     Active Substance: LEDIPASVIR\SOFOSBUVIR
     Indication: HEPATITIS C
     Dosage: 1 TAB, EVERYDAY, PO
     Route: 048
     Dates: start: 20150121, end: 20150319

REACTIONS (3)
  - Nausea [None]
  - Vomiting [None]
  - Arthralgia [None]

NARRATIVE: CASE EVENT DATE: 20150319
